FAERS Safety Report 8183667-4 (Version None)
Quarter: 2012Q1

REPORT INFORMATION
  Report Type: 
  Country: None (occurrence: None)
  Receive Date: 20120305
  Receipt Date: 20120221
  Transmission Date: 20120608
  Serious: No
  Sender: FDA-Public Use
  Company Number: PHHY2012PL013018

PATIENT
  Sex: Female

DRUGS (8)
  1. MYCOPHENOLATE MOFETIL [Concomitant]
     Dosage: UNK UKN, UNK
  2. CYCLOPHOSPHAMIDE [Suspect]
     Indication: NEPHROTIC SYNDROME
  3. TACROLIMUS [Concomitant]
     Indication: NEPHROTIC SYNDROME
     Dosage: UNK UKN, UNK
  4. METHYLPREDNISOLONE [Concomitant]
     Indication: NEPHROTIC SYNDROME
     Dosage: UNK UKN, UNK
  5. AZATHIOPRINE [Suspect]
     Indication: NEPHROTIC SYNDROME
  6. CHLORAMBUCIL [Suspect]
     Indication: NEPHROTIC SYNDROME
  7. STEROIDS NOS [Suspect]
     Indication: NEPHROTIC SYNDROME
     Dosage: UNK UKN, UNK
  8. CYCLOSPORINE [Suspect]
     Indication: NEPHROTIC SYNDROME

REACTIONS (1)
  - DRUG INEFFECTIVE [None]
